FAERS Safety Report 15281925 (Version 1)
Quarter: 2018Q3

REPORT INFORMATION
  Report Type: Spontaneous
  Country: US (occurrence: US)
  Receive Date: 20180815
  Receipt Date: 20180815
  Transmission Date: 20181010
  Serious: No
  Sender: FDA-Public Use
  Company Number: US-PFIZER INC-2017548733

PATIENT
  Age: 12 Year
  Sex: Male

DRUGS (2)
  1. GENOTROPIN [Suspect]
     Active Substance: SOMATROPIN
     Dosage: 1.6 MG, DAILY
     Dates: start: 2008
  2. GENOTROPIN [Suspect]
     Active Substance: SOMATROPIN
     Indication: BLOOD GROWTH HORMONE
     Dosage: 1.3 MG, (5 DAYS A WEEK)
     Dates: start: 20170926

REACTIONS (6)
  - Blood alkaline phosphatase increased [Unknown]
  - Weight increased [Unknown]
  - Headache [Unknown]
  - Cortisol decreased [Unknown]
  - Drug prescribing error [Unknown]
  - Blood urea decreased [Unknown]
